FAERS Safety Report 26121041 (Version 1)
Quarter: 2025Q4

REPORT INFORMATION
  Report Type: Spontaneous
  Country: US (occurrence: US)
  Receive Date: 20251204
  Receipt Date: 20251204
  Transmission Date: 20260117
  Serious: No
  Sender: Kenvue
  Company Number: US-KENVUE-20251104238

PATIENT
  Age: 45 Year
  Sex: Female

DRUGS (7)
  1. TYLENOL [Suspect]
     Active Substance: ACETAMINOPHEN
     Indication: Migraine
     Dosage: UNK
     Route: 065
  2. TYVASO [Concomitant]
     Active Substance: TREPROSTINIL
     Indication: Pulmonary arterial hypertension
     Dosage: 18 ?G (3 BREATHS), FOUR TIMES A DAY (QID)
     Dates: start: 202510, end: 202510
  3. TYVASO [Concomitant]
     Active Substance: TREPROSTINIL
     Dosage: 24 ?G (4 BREATHS), QID
     Dates: start: 202510, end: 202510
  4. TYVASO [Concomitant]
     Active Substance: TREPROSTINIL
     Dosage: 36 ?G (6 BREATHS), QID
     Dates: start: 202510
  5. TYVASO [Concomitant]
     Active Substance: TREPROSTINIL
     Dosage: UNK
  6. OPSUMIT [Concomitant]
     Active Substance: MACITENTAN
     Indication: Product used for unknown indication
     Route: 065
  7. WINREVAIR [Concomitant]
     Active Substance: SOTATERCEPT-CSRK
     Indication: Product used for unknown indication
     Route: 065

REACTIONS (1)
  - Drug ineffective [Unknown]

NARRATIVE: CASE EVENT DATE: 20251001
